FAERS Safety Report 9160803 (Version 1)
Quarter: 2013Q1

REPORT INFORMATION
  Report Type: Spontaneous
  Country: BR (occurrence: None)
  Receive Date: 20130220
  Receipt Date: 20130220
  Transmission Date: 20140127
  Serious: Yes (Hospitalization)
  Sender: FDA-Public Use
  Company Number: DSJ-2013-03087

PATIENT
  Age: 7 Decade
  Sex: Male
  Weight: 82 kg

DRUGS (1)
  1. BENICAR HCT (HYDROCHLOROTHIAZIDE, OLMESARTAN MEDOXOMIL ) (TABLET) (HYDROCHLOROTHIAZIDE, OLMESARTAN MEDOXOMIL) [Suspect]
     Indication: HYPERTENSION
     Dosage: 20/12.5 MG (1 IN 1 D), PER ORAL
     Route: 048
     Dates: start: 2005, end: 20130103

REACTIONS (5)
  - Diarrhoea [None]
  - Abdominal pain [None]
  - Nausea [None]
  - Vomiting [None]
  - Dizziness [None]
